FAERS Safety Report 18271048 (Version 4)
Quarter: 2022Q3

REPORT INFORMATION
  Report Type: Report from Study
  Country: US (occurrence: US)
  Receive Date: 20200915
  Receipt Date: 20220905
  Transmission Date: 20221027
  Serious: No
  Sender: FDA-Public Use
  Company Number: None

PATIENT
  Sex: Male

DRUGS (1)
  1. ENTRESTO [Suspect]
     Active Substance: SACUBITRIL\VALSARTAN
     Indication: Product used for unknown indication
     Dosage: UNK
     Route: 048

REACTIONS (7)
  - General physical health deterioration [Unknown]
  - Illness [Unknown]
  - Cardiac disorder [Unknown]
  - Lung disorder [Unknown]
  - Emphysema [Unknown]
  - Hypoacusis [Unknown]
  - Product dose omission issue [Unknown]
